FAERS Safety Report 6106162-2 (Version None)
Quarter: 2009Q1

REPORT INFORMATION
  Report Type: 
  Country: None (occurrence: None)
  Receive Date: 20090306
  Receipt Date: 20081014
  Transmission Date: 20090719
  Serious: Yes (Hospitalization)
  Sender: FDA-Public Use
  Company Number: PHHY2008GB25394

PATIENT
  Sex: Female

DRUGS (2)
  1. SANDOSTATIN [Suspect]
     Dosage: UNK
     Route: 058
     Dates: start: 20080701
  2. VALIUM [Concomitant]
     Route: 065

REACTIONS (3)
  - DYSPHASIA [None]
  - ENERGY INCREASED [None]
  - WEIGHT DECREASED [None]
